FAERS Safety Report 16316712 (Version 6)
Quarter: 2020Q3

REPORT INFORMATION
  Report Type: Report from Study
  Country: DE (occurrence: DE)
  Receive Date: 20190515
  Receipt Date: 20200928
  Transmission Date: 20201102
  Serious: Yes (Death, Hospitalization, Other)
  Sender: FDA-Public Use
  Company Number: DE-BRISTOL-MYERS SQUIBB COMPANY-BMS-2019-034558

PATIENT
  Age: 48 Year
  Sex: Male
  Weight: 117.7 kg

DRUGS (35)
  1. PREDNISOLON [PREDNISOLONE] [Concomitant]
     Active Substance: PREDNISOLONE
     Dosage: 60 MILLIGRAM
     Route: 065
     Dates: start: 20190307, end: 20190310
  2. PREDNISOLON [PREDNISOLONE] [Concomitant]
     Active Substance: PREDNISOLONE
     Dosage: 20 MILLIGRAM
     Dates: start: 20190319, end: 20190322
  3. PREDNISOLON [PREDNISOLONE] [Concomitant]
     Active Substance: PREDNISOLONE
     Dosage: 7.5 MILLIGRAM
     Route: 065
     Dates: start: 20190331, end: 20190401
  4. IPILIMUMAB [Suspect]
     Active Substance: IPILIMUMAB
     Indication: BLADDER CANCER
     Dosage: 3 MILLIGRAM/KILOGRAM
     Route: 042
     Dates: start: 20181115
  5. PREDNISOLON [PREDNISOLONE] [Concomitant]
     Active Substance: PREDNISOLONE
     Indication: PRODUCT USED FOR UNKNOWN INDICATION
     Dosage: 120 MILLIGRAM
     Route: 016
     Dates: start: 20190125, end: 20190126
  6. VIGANTOL [COLECALCIFEROL] [Concomitant]
     Active Substance: CHOLECALCIFEROL
     Indication: PRODUCT USED FOR UNKNOWN INDICATION
     Dosage: 1 DOSAGE FORM
     Route: 065
     Dates: start: 201507
  7. ARIXTRA [Concomitant]
     Active Substance: FONDAPARINUX SODIUM
     Indication: PRODUCT USED FOR UNKNOWN INDICATION
     Dosage: 10 MILLIGRAM
     Route: 065
     Dates: start: 201807
  8. PREDNISOLON [PREDNISOLONE] [Concomitant]
     Active Substance: PREDNISOLONE
     Dosage: 40 MILLIGRAM
     Route: 065
     Dates: start: 20190311, end: 20190314
  9. PREDNISOLON [PREDNISOLONE] [Concomitant]
     Active Substance: PREDNISOLONE
     Dosage: 15 MILLIGRAM
     Route: 065
     Dates: start: 20190323, end: 20190326
  10. ASPIRIN. [Concomitant]
     Active Substance: ASPIRIN
     Indication: PRODUCT USED FOR UNKNOWN INDICATION
     Dosage: UNK
     Route: 065
     Dates: start: 20190429, end: 20190505
  11. IBUPROFEN. [Concomitant]
     Active Substance: IBUPROFEN
     Indication: PRODUCT USED FOR UNKNOWN INDICATION
     Dosage: UNK
     Route: 065
     Dates: start: 20190501, end: 20190505
  12. PREDNISOLON [PREDNISOLONE] [Concomitant]
     Active Substance: PREDNISOLONE
     Dosage: 100 MILLIGRAM
     Route: 065
     Dates: start: 20190127, end: 20190302
  13. AMPICILLIN;SULBACTAM [Concomitant]
     Active Substance: AMPICILLIN SODIUM\SULBACTAM SODIUM
     Indication: PRODUCT USED FOR UNKNOWN INDICATION
     Dosage: UNK
     Route: 065
  14. ACTILYSE [Concomitant]
     Active Substance: ALTEPLASE
     Indication: PRODUCT USED FOR UNKNOWN INDICATION
     Dosage: UNK
     Route: 065
  15. FOLIC ACID. [Concomitant]
     Active Substance: FOLIC ACID
     Indication: PRODUCT USED FOR UNKNOWN INDICATION
     Dosage: 5 MILLIGRAM
     Route: 065
     Dates: start: 201807
  16. PIPERACILLIN/TAZOBACTAM [Concomitant]
     Active Substance: PIPERACILLIN SODIUM\TAZOBACTAM SODIUM
     Indication: PRODUCT USED FOR UNKNOWN INDICATION
     Dosage: UNK
     Route: 065
     Dates: start: 20190430, end: 20190505
  17. GABAPENTIN. [Concomitant]
     Active Substance: GABAPENTIN
     Indication: PRODUCT USED FOR UNKNOWN INDICATION
     Dosage: UNK
     Route: 065
     Dates: start: 20190428, end: 20190505
  18. NIVOLUMAB [Suspect]
     Active Substance: NIVOLUMAB
     Indication: BLADDER CANCER
     Dosage: 1 MILLIGRAM/KILOGRAM
     Route: 042
     Dates: start: 20181115
  19. DEKRISTOL [Concomitant]
     Active Substance: CHOLECALCIFEROL
     Indication: PRODUCT USED FOR UNKNOWN INDICATION
     Dosage: 1 DOSAGE FORM
     Route: 065
     Dates: start: 201507
  20. PREDNISOLON [PREDNISOLONE] [Concomitant]
     Active Substance: PREDNISOLONE
     Dosage: 5 MILLIGRAM
     Route: 065
     Dates: start: 20190402, end: 20190404
  21. PREDNISOLON [PREDNISOLONE] [Concomitant]
     Active Substance: PREDNISOLONE
     Dosage: 5 MILLIGRAM
     Route: 065
     Dates: start: 20190405, end: 20190406
  22. TEGRETAL [Concomitant]
     Active Substance: CARBAMAZEPINE
     Indication: PRODUCT USED FOR UNKNOWN INDICATION
     Dosage: UNK
     Route: 065
     Dates: start: 20190429, end: 20190505
  23. VITAMIN B12 [Concomitant]
     Active Substance: CYANOCOBALAMIN
     Indication: PRODUCT USED FOR UNKNOWN INDICATION
     Dosage: 1 DOSAGE FORM
     Route: 065
     Dates: start: 201508
  24. RIOPAN [MAGALDRATE] [Concomitant]
     Active Substance: MAGALDRATE
     Indication: PRODUCT USED FOR UNKNOWN INDICATION
     Dosage: 800 MILLIGRAM
     Route: 065
     Dates: start: 2017
  25. OMEPRAZOL [OMEPRAZOLE] [Concomitant]
     Active Substance: OMEPRAZOLE
     Indication: PRODUCT USED FOR UNKNOWN INDICATION
     Dosage: UNK
     Route: 065
     Dates: start: 20190125
  26. PREDNISOLON [PREDNISOLONE] [Concomitant]
     Active Substance: PREDNISOLONE
     Dosage: 10 MILLIGRAM
     Route: 065
     Dates: start: 20190327, end: 20190330
  27. DIPIDOLOR [Concomitant]
     Active Substance: PIRITRAMIDE
     Indication: PRODUCT USED FOR UNKNOWN INDICATION
     Dosage: UNK
     Route: 065
  28. KETAMINE [Concomitant]
     Active Substance: KETAMINE
     Indication: PRODUCT USED FOR UNKNOWN INDICATION
     Dosage: UNK
     Route: 065
  29. TARDYFERON [Concomitant]
     Active Substance: FERROUS SULFATE
     Indication: PRODUCT USED FOR UNKNOWN INDICATION
     Dosage: 80 MILLIGRAM
     Route: 065
     Dates: start: 20180711
  30. L?THYROXINE [LEVOTHYROXINE] [Concomitant]
     Active Substance: LEVOTHYROXINE
     Indication: PRODUCT USED FOR UNKNOWN INDICATION
     Dosage: UNK
     Route: 065
     Dates: start: 20190118
  31. PREDNISOLON [PREDNISOLONE] [Concomitant]
     Active Substance: PREDNISOLONE
     Dosage: 80 MILLIGRAM
     Route: 065
     Dates: start: 20190303, end: 20190306
  32. PREDNISOLON [PREDNISOLONE] [Concomitant]
     Active Substance: PREDNISOLONE
     Dosage: 30 MILLIGRAM
     Route: 065
     Dates: start: 20190315, end: 20190318
  33. LEVOFLOXACIN. [Concomitant]
     Active Substance: LEVOFLOXACIN
     Indication: PRODUCT USED FOR UNKNOWN INDICATION
     Dosage: UNK
     Route: 065
     Dates: start: 20190503, end: 20190505
  34. AMINEURIN [Concomitant]
     Active Substance: AMITRIPTYLINE HYDROCHLORIDE
     Indication: PRODUCT USED FOR UNKNOWN INDICATION
     Dosage: UNK
     Route: 065
     Dates: start: 20190501, end: 20190505
  35. MORPHINE [Concomitant]
     Active Substance: MORPHINE
     Indication: PRODUCT USED FOR UNKNOWN INDICATION
     Dosage: UNK
     Route: 065

REACTIONS (2)
  - Peripheral embolism [Recovered/Resolved]
  - Pulmonary embolism [Fatal]

NARRATIVE: CASE EVENT DATE: 20190404
